FAERS Safety Report 8514116 (Version 2)
Quarter: 2012Q4

REPORT INFORMATION
  Report Type: 
  Country: US (occurrence: US)
  Receive Date: 20120416
  Receipt Date: 20121227
  Transmission Date: 20130627
  Serious: Yes (Congenital Anomaly, Other)
  Sender: FDA-Public Use
  Company Number: US-PFIZER INC-2012091579

PATIENT
  Sex: Female

DRUGS (3)
  1. ZOLOFT [Suspect]
     Indication: DEPRESSION
     Dosage: 150 mg, 1x/day
     Route: 064
     Dates: start: 2006
  2. IBUPROFEN [Concomitant]
     Indication: PAIN
     Dosage: 600mg one tablet every 8 hours
     Route: 064
  3. PRO-AIR [Concomitant]
     Dosage: (200 puffs) 8.5gm inhaler, 2 puffs every 6 hours
     Route: 064
     Dates: start: 20071123

REACTIONS (2)
  - Maternal exposure timing unspecified [Unknown]
  - Cleft palate [Unknown]
